FAERS Safety Report 4691638-5 (Version None)
Quarter: 2005Q2

REPORT INFORMATION
  Report Type: 
  Country: None (occurrence: None)
  Receive Date: 20050616
  Receipt Date: 20050606
  Transmission Date: 20051028
  Serious: Yes (Hospitalization, Other)
  Sender: FDA-Public Use
  Company Number: NSADSS2003013989

PATIENT
  Age: 29 Year
  Sex: Male

DRUGS (3)
  1. REMICADE [Suspect]
     Route: 041
  2. PREDNISOLONE [Suspect]
  3. AZATHIOPRINE [Concomitant]

REACTIONS (6)
  - C-REACTIVE PROTEIN INCREASED [None]
  - HYPOXIA [None]
  - LYMPHOCYTE COUNT DECREASED [None]
  - PNEUMOCYSTIS JIROVECI INFECTION [None]
  - PO2 DECREASED [None]
  - WHITE BLOOD CELL COUNT DECREASED [None]
